FAERS Safety Report 4931126-1 (Version None)
Quarter: 2006Q1

REPORT INFORMATION
  Report Type: 
  Country: None (occurrence: None)
  Receive Date: 20060302
  Receipt Date: 20050829
  Transmission Date: 20060701
  Serious: Yes (Hospitalization)
  Sender: FDA-Public Use
  Company Number: US-MERCK-0508USA05033

PATIENT
  Age: 67 Year
  Sex: Male
  Weight: 107 kg

DRUGS (5)
  1. VIOXX [Suspect]
     Indication: PAIN
     Route: 048
     Dates: start: 20020101, end: 20041001
  2. VIOXX [Suspect]
     Indication: ARTHRITIS
     Route: 048
     Dates: start: 20020101, end: 20041001
  3. TRICOR [Suspect]
     Route: 065
  4. PRILOSEC [Concomitant]
     Route: 065
  5. PROSCAR [Concomitant]
     Route: 065

REACTIONS (14)
  - BENIGN PROSTATIC HYPERPLASIA [None]
  - BLOOD TRIGLYCERIDES INCREASED [None]
  - CARDIAC FAILURE CONGESTIVE [None]
  - DEHYDRATION [None]
  - ERECTILE DYSFUNCTION [None]
  - HEPATIC ENZYME INCREASED [None]
  - HERNIA [None]
  - MYOCARDIAL INFARCTION [None]
  - MYOSITIS [None]
  - PERICARDITIS [None]
  - PHOTOPSIA [None]
  - RHABDOMYOLYSIS [None]
  - SLEEP APNOEA SYNDROME [None]
  - SOMNOLENCE [None]
